APPROVED DRUG PRODUCT: HYSINGLA ER
Active Ingredient: HYDROCODONE BITARTRATE
Strength: 80MG
Dosage Form/Route: TABLET, EXTENDED RELEASE;ORAL
Application: N206627 | Product #005 | TE Code: AB
Applicant: PURDUE PHARMA LP
Approved: Nov 20, 2014 | RLD: Yes | RS: No | Type: RX

PATENTS:
Patent 8808740 | Expires: Dec 21, 2031
Patent 9492391 | Expires: Aug 24, 2027
Patent 9545380 | Expires: Aug 24, 2027
Patent 9492390 | Expires: Aug 24, 2027
Patent 9095614 | Expires: Aug 24, 2027
Patent 11304909 | Expires: Aug 24, 2027
Patent 9770416 | Expires: Aug 24, 2027
Patent 9872837 | Expires: Dec 21, 2031
Patent 9861584 | Expires: Dec 21, 2031
Patent 9095615 | Expires: Aug 24, 2027
Patent 9572779 | Expires: Dec 21, 2031
Patent 9763933 | Expires: Aug 24, 2027
Patent 11304908 | Expires: Aug 24, 2027
Patent 9492389 | Expires: Aug 24, 2027
Patent 9775809 | Expires: Aug 24, 2027
Patent 9486412 | Expires: Aug 24, 2027
Patent 9750703 | Expires: Dec 21, 2031
Patent 9084816 | Expires: Aug 24, 2027
Patent 9486413 | Expires: Aug 24, 2027